FAERS Safety Report 20108754 (Version 1)
Quarter: 2021Q4

REPORT INFORMATION
  Report Type: Spontaneous
  Country: US (occurrence: US)
  Receive Date: 20211124
  Receipt Date: 20211124
  Transmission Date: 20220303
  Serious: No
  Sender: FDA-Public Use
  Company Number: MIQ-08112021-1057

PATIENT
  Sex: Male

DRUGS (1)
  1. IVERMECTIN [Suspect]
     Active Substance: IVERMECTIN
     Indication: COVID-19 prophylaxis
     Dosage: UNK
     Route: 065

REACTIONS (2)
  - Product taste abnormal [Unknown]
  - Product use in unapproved indication [Unknown]
